FAERS Safety Report 8955153 (Version 1)
Quarter: 2012Q4

REPORT INFORMATION
  Report Type: Report from Study
  Country: CA (occurrence: CA)
  Receive Date: 20121207
  Receipt Date: 20121207
  Transmission Date: 20130627
  Serious: Yes (Death, Hospitalization)
  Sender: FDA-Public Use
  Company Number: CA-ROCHE-1144975

PATIENT
  Age: 34 None
  Sex: Male
  Weight: 102.15 kg

DRUGS (16)
  1. BEVACIZUMAB [Suspect]
     Indication: RECTAL CANCER METASTATIC
     Route: 042
     Dates: start: 20120927
  2. OXYNEO [Concomitant]
  3. OXYCODONE [Concomitant]
  4. AMITRIPTYLINE [Concomitant]
  5. DDAVP [Concomitant]
  6. FRAGMIN [Concomitant]
  7. FLOMAX [Concomitant]
  8. STEMETIL [Concomitant]
  9. LOMOTIL [Concomitant]
  10. IMODIUM [Concomitant]
  11. GABAPENTIN [Concomitant]
  12. RANITIDINE [Concomitant]
  13. DEXAMETHASONE [Concomitant]
  14. FOLINIC ACID [Concomitant]
  15. FLUOROURACIL [Concomitant]
  16. OXALIPLATIN [Concomitant]

REACTIONS (5)
  - Dyspnoea [Not Recovered/Not Resolved]
  - Pneumonia [Not Recovered/Not Resolved]
  - Infection [Not Recovered/Not Resolved]
  - Platelet count decreased [Unknown]
  - Death [Fatal]
